FAERS Safety Report 8968944 (Version 2)
Quarter: 2013Q1

REPORT INFORMATION
  Report Type: Report from Study
  Country: US (occurrence: US)
  Receive Date: 20121217
  Receipt Date: 20130301
  Transmission Date: 20140127
  Serious: Yes (Hospitalization)
  Sender: FDA-Public Use
  Company Number: US-ACTELION-A-US2012-76023

PATIENT
  Age: 84 Year
  Sex: Female

DRUGS (3)
  1. TRACLEER [Suspect]
     Indication: PULMONARY ARTERIAL HYPERTENSION
     Dosage: 62.5
     Route: 048
     Dates: start: 201206
  2. TRACLEER [Suspect]
     Dosage: 62.5
     Route: 048
     Dates: start: 20060517, end: 201206
  3. COUMADIN [Suspect]
     Dosage: UNK
     Dates: end: 201206

REACTIONS (1)
  - Large intestinal haemorrhage [Unknown]
